FAERS Safety Report 7578643-6 (Version None)
Quarter: 2011Q2

REPORT INFORMATION
  Report Type: 
  Country: None (occurrence: None)
  Receive Date: 20110628
  Receipt Date: 20110621
  Transmission Date: 20111010
  Serious: Yes (Other)
  Sender: FDA-Public Use
  Company Number: PHHO2011FR02812

PATIENT
  Sex: Female
  Weight: 84 kg

DRUGS (5)
  1. AROMASIN [Suspect]
     Indication: BREAST CANCER
  2. OROCAL D3 [Suspect]
  3. ZYMA [Suspect]
  4. ZOLEDRONIC ACID [Suspect]
     Dosage: UNK
  5. KETOPROFEN [Suspect]

REACTIONS (8)
  - MIDDLE INSOMNIA [None]
  - INSOMNIA [None]
  - OSTEOPENIA [None]
  - LIBIDO DECREASED [None]
  - HOT FLUSH [None]
  - ARTHRALGIA [None]
  - FATIGUE [None]
  - HYPERCHOLESTEROLAEMIA [None]
